FAERS Safety Report 4991473-4 (Version None)
Quarter: 2006Q2

REPORT INFORMATION
  Report Type: 
  Country: None (occurrence: None)
  Receive Date: 20060501
  Receipt Date: 20060501
  Transmission Date: 20061013
  Serious: No
  Sender: FDA-Public Use
  Company Number: None

PATIENT
  Sex: Female

DRUGS (1)
  1. AMOXICILLIN [Suspect]
     Indication: PROPHYLAXIS
     Dosage: 500MG   THREE TIMES DAILY   PO  (DURATION: 2 DOSES)
     Route: 048
     Dates: start: 20060428, end: 20060428

REACTIONS (2)
  - ERYTHEMA [None]
  - PRURITUS [None]
